FAERS Safety Report 4947756-7 (Version None)
Quarter: 2006Q1

REPORT INFORMATION
  Report Type: 
  Country: None (occurrence: None)
  Receive Date: 20060320
  Receipt Date: 20060313
  Transmission Date: 20060701
  Serious: Yes (Other)
  Sender: FDA-Public Use
  Company Number: US-AVENTIS-200612343US

PATIENT
  Sex: Female

DRUGS (1)
  1. CARAC [Suspect]
     Dosage: DOSE: UNKNOWN

REACTIONS (2)
  - PAIN [None]
  - SKIN HAEMORRHAGE [None]
